FAERS Safety Report 18911582 (Version 2)
Quarter: 2021Q2

REPORT INFORMATION
  Report Type: Report from Study
  Country: FR (occurrence: FR)
  Receive Date: 20210218
  Receipt Date: 20210520
  Transmission Date: 20210717
  Serious: Yes (Hospitalization)
  Sender: FDA-Public Use
  Company Number: FR-SA-2021SA013895

PATIENT
  Age: 34 Year
  Sex: Male
  Weight: 75 kg

DRUGS (5)
  1. CEMIPLIMAB [Suspect]
     Active Substance: CEMIPLIMAB
     Indication: LYMPHOMA
     Dosage: 250 MG, QOW
     Route: 042
  2. ISATUXIMAB [Suspect]
     Active Substance: ISATUXIMAB
     Dosage: 10 MG/KG, QW
     Route: 042
     Dates: start: 20191114, end: 20191114
  3. METHYLPREDNISOLONE. [Concomitant]
     Active Substance: METHYLPREDNISOLONE
     Indication: PROPHYLAXIS
     Dosage: 50 MG, 1X
     Route: 042
     Dates: start: 20201228, end: 20201228
  4. CEMIPLIMAB [Suspect]
     Active Substance: CEMIPLIMAB
     Dosage: 250 MG, QOW
     Route: 042
     Dates: start: 20191113, end: 20191113
  5. ISATUXIMAB [Suspect]
     Active Substance: ISATUXIMAB
     Indication: LYMPHOMA
     Dosage: 10 MG/KG, QOW
     Route: 042

REACTIONS (1)
  - Epstein-Barr virus infection [Recovered/Resolved]

NARRATIVE: CASE EVENT DATE: 20210109
